FAERS Safety Report 9034039 (Version 1)
Quarter: 2013Q1

REPORT INFORMATION
  Report Type: Spontaneous
  Country: US (occurrence: US)
  Receive Date: 20130128
  Receipt Date: 20130128
  Transmission Date: 20140127
  Serious: Yes (Other)
  Sender: FDA-Public Use
  Company Number: US-AMGEN-USASP2012063943

PATIENT
  Age: 57 Year
  Sex: Male

DRUGS (1)
  1. ENBREL [Suspect]
     Indication: ANKYLOSING SPONDYLITIS
     Dosage: 25 MG, QWK
     Dates: start: 20070101

REACTIONS (7)
  - Blindness [Recovered/Resolved]
  - Hand fracture [Recovered/Resolved]
  - Loss of consciousness [Recovered/Resolved]
  - Respiratory tract congestion [Not Recovered/Not Resolved]
  - Headache [Recovered/Resolved]
  - Influenza [Recovered/Resolved]
  - Nasopharyngitis [Not Recovered/Not Resolved]
